FAERS Safety Report 20712169 (Version 1)
Quarter: 2022Q2

REPORT INFORMATION
  Report Type: Spontaneous
  Country: AU (occurrence: AU)
  Receive Date: 20220414
  Receipt Date: 20220414
  Transmission Date: 20220720
  Serious: Yes (Other)
  Sender: FDA-Public Use
  Company Number: AU-ORGANON-O2204AUS000651

PATIENT
  Age: 79 Year
  Sex: Male

DRUGS (1)
  1. FOSAMAX PLUS D [Suspect]
     Active Substance: ALENDRONATE SODIUM\CHOLECALCIFEROL
     Dosage: 40MG ONCE DAILY
     Route: 048
     Dates: end: 2007

REACTIONS (5)
  - Blood calcium abnormal [Not Recovered/Not Resolved]
  - Overdose [Unknown]
  - Osteitis deformans [Not Recovered/Not Resolved]
  - Bone density decreased [Not Recovered/Not Resolved]
  - Back pain [Unknown]
